FAERS Safety Report 7658363-X (Version None)
Quarter: 2011Q3

REPORT INFORMATION
  Report Type: 
  Country: None (occurrence: None)
  Receive Date: 20110805
  Receipt Date: 20110727
  Transmission Date: 20111222
  Serious: Yes (Other)
  Sender: FDA-Public Use
  Company Number: US-JNJFOC-20110712440

PATIENT
  Sex: Female
  Weight: 40.82 kg

DRUGS (9)
  1. SYNTHROID [Concomitant]
     Indication: HYPOTHYROIDISM
     Route: 048
     Dates: start: 19900101
  2. CELEXA [Concomitant]
     Indication: DEPRESSION
     Route: 048
  3. TOPAMAX [Suspect]
     Indication: NEURALGIA
     Route: 048
     Dates: start: 20080101
  4. XANAX [Concomitant]
     Indication: ANXIETY
     Route: 048
  5. DURAGESIC-100 [Suspect]
     Route: 062
     Dates: end: 20080101
  6. DURAGESIC-100 [Suspect]
     Route: 062
  7. HYDROCHLOROTHIAZIDE [Concomitant]
     Indication: BLOOD PRESSURE
     Route: 048
     Dates: start: 20080101
  8. PROMETHAZINE [Concomitant]
     Indication: NAUSEA
     Route: 048
  9. DURAGESIC-100 [Suspect]
     Indication: NEURALGIA
     Route: 062

REACTIONS (8)
  - MALAISE [None]
  - HERPES VIRUS INFECTION [None]
  - DRUG INEFFECTIVE [None]
  - HYPERHIDROSIS [None]
  - WEIGHT DECREASED [None]
  - PAIN [None]
  - APHONIA [None]
  - STRESS [None]
